FAERS Safety Report 4576172-5 (Version None)
Quarter: 2005Q1

REPORT INFORMATION
  Report Type: 
  Country: None (occurrence: None)
  Receive Date: 20050204
  Receipt Date: 20050121
  Transmission Date: 20050727
  Serious: Yes (Hospitalization)
  Sender: FDA-Public Use
  Company Number: 2004AP05997

PATIENT
  Age: 54 Year
  Sex: Female
  Weight: 59 kg

DRUGS (4)
  1. ANAPEINE [Suspect]
     Indication: EPIDURAL ANAESTHESIA
     Dosage: 4 ML/ HR ED
     Dates: start: 20041102, end: 20041122
  2. UNASYN [Suspect]
     Dosage: 3 G DAILY IVD
     Dates: start: 20041111, end: 20041115
  3. MORPHINE HYDROCHLORIDE [Concomitant]
  4. XYLOCAINE [Concomitant]

REACTIONS (9)
  - ANAESTHETIC COMPLICATION [None]
  - HEPATIC FUNCTION ABNORMAL [None]
  - HEPATIC STEATOSIS [None]
  - INFECTION [None]
  - JAUNDICE [None]
  - OPERATIVE HAEMORRHAGE [None]
  - POST PROCEDURAL COMPLICATION [None]
  - PURULENCE [None]
  - WOUND INFECTION [None]
